FAERS Safety Report 25316875 (Version 1)
Quarter: 2025Q2

REPORT INFORMATION
  Report Type: Spontaneous
  Country: JP (occurrence: JP)
  Receive Date: 20250515
  Receipt Date: 20250515
  Transmission Date: 20250717
  Serious: Yes (Other)
  Sender: GLAXOSMITHKLINE
  Company Number: None

PATIENT

DRUGS (2)
  1. NUCALA [Suspect]
     Active Substance: MEPOLIZUMAB
     Dates: start: 20231227
  2. METHOTREXATE [Concomitant]
     Active Substance: METHOTREXATE

REACTIONS (3)
  - Eosinophilic granulomatosis with polyangiitis [Unknown]
  - Arthritis [Recovered/Resolved]
  - Purpura [Unknown]

NARRATIVE: CASE EVENT DATE: 20241001
